FAERS Safety Report 13045516 (Version 1)
Quarter: 2016Q4

REPORT INFORMATION
  Report Type: Spontaneous
  Country: US (occurrence: US)
  Receive Date: 20161220
  Receipt Date: 20161220
  Transmission Date: 20170207
  Serious: Yes (Other)
  Sender: FDA-Public Use
  Company Number: None

PATIENT
  Age: 25 Year
  Sex: Male
  Weight: 126 kg

DRUGS (5)
  1. LOSARTAN POTASSIUM. [Concomitant]
     Active Substance: LOSARTAN POTASSIUM
  2. VITAMIN D [Concomitant]
     Active Substance: CHOLECALCIFEROL
  3. LORATADINE. [Concomitant]
     Active Substance: LORATADINE
  4. LEVETIRACETAM TABLETS CAMBER PHARMACEUTICAL INC. [Suspect]
     Active Substance: LEVETIRACETAM
     Indication: COMPLEX PARTIAL SEIZURES
     Dosage: ?          QUANTITY:3 TABLET(S);?
     Route: 048
     Dates: start: 20161203, end: 20161206
  5. OXTELLAR XR [Concomitant]
     Active Substance: OXCARBAZEPINE

REACTIONS (1)
  - Seizure [None]

NARRATIVE: CASE EVENT DATE: 20161204
